FAERS Safety Report 9782602 (Version 1)
Quarter: 2013Q4

REPORT INFORMATION
  Report Type: Spontaneous
  Country: JP (occurrence: None)
  Receive Date: 20131220
  Receipt Date: 20131220
  Transmission Date: 20140711
  Serious: Yes (Other)
  Sender: FDA-Public Use
  Company Number: 2013P1021991

PATIENT
  Age: 27 Year
  Sex: Female

DRUGS (1)
  1. PHENOBARBITAL [Suspect]

REACTIONS (3)
  - Drug reaction with eosinophilia and systemic symptoms [None]
  - Diffuse alopecia [None]
  - Alopecia scarring [None]
